FAERS Safety Report 23080473 (Version 1)
Quarter: 2023Q4

REPORT INFORMATION
  Report Type: Spontaneous
  Country: US (occurrence: None)
  Receive Date: 20231017
  Receipt Date: 20231017
  Transmission Date: 20240109
  Serious: Yes (Hospitalization)
  Sender: FDA-Public Use
  Company Number: None

PATIENT
  Age: 80 Year
  Sex: Male
  Weight: 76 kg

DRUGS (2)
  1. WARFARIN SODIUM [Suspect]
     Active Substance: WARFARIN SODIUM
     Dates: start: 20160204, end: 20230104
  2. ASPIRIN 81MG [Suspect]
     Active Substance: ASPIRIN
     Dates: start: 20160209, end: 20230104

REACTIONS (3)
  - Haemoglobin decreased [None]
  - Haemorrhage [None]
  - Therapy interrupted [None]

NARRATIVE: CASE EVENT DATE: 20230104
